FAERS Safety Report 11666704 (Version 1)
Quarter: 2015Q4

REPORT INFORMATION
  Report Type: Spontaneous
  Country: US (occurrence: US)
  Receive Date: 20151027
  Receipt Date: 20151027
  Transmission Date: 20160304
  Serious: No
  Sender: FDA-Public Use
  Company Number: US-ELI_LILLY_AND_COMPANY-US201001000498

PATIENT
  Age: 27 Year
  Sex: Male
  Weight: 56.24 kg

DRUGS (5)
  1. FORTEO [Suspect]
     Active Substance: TERIPARATIDE
     Dosage: 20 UG, DAILY (1/D)
     Dates: start: 201001
  2. IMURAN [Concomitant]
     Active Substance: AZATHIOPRINE
  3. FORTEO [Suspect]
     Active Substance: TERIPARATIDE
     Indication: OSTEOPOROSIS
     Dosage: 20 UG, DAILY (1/D)
     Dates: start: 200912, end: 20091223
  4. ANDROGEL [Concomitant]
     Active Substance: TESTOSTERONE
  5. PREDNISONE. [Concomitant]
     Active Substance: PREDNISONE

REACTIONS (4)
  - Dermatomyositis [Unknown]
  - Myalgia [Unknown]
  - Swelling face [Unknown]
  - Weight increased [Unknown]

NARRATIVE: CASE EVENT DATE: 200912
